FAERS Safety Report 5674340-2 (Version None)
Quarter: 2008Q1

REPORT INFORMATION
  Report Type: 
  Country: None (occurrence: None)
  Receive Date: 20080320
  Receipt Date: 20080313
  Transmission Date: 20080703
  Serious: Yes (Other)
  Sender: FDA-Public Use
  Company Number: GB-TEVA-165137ISR

PATIENT
  Age: 80 Year
  Sex: Female

DRUGS (2)
  1. PAMIDRONIC ACID [Suspect]
     Indication: OSTEOPOROSIS
     Route: 042
  2. LATANOPROST [Interacting]

REACTIONS (2)
  - DRUG INTERACTION [None]
  - IRIDOCYCLITIS [None]
